FAERS Safety Report 5814501-2 (Version None)
Quarter: 2008Q3

REPORT INFORMATION
  Report Type: 
  Country: None (occurrence: None)
  Receive Date: 20080718
  Receipt Date: 20080718
  Transmission Date: 20090109
  Serious: Yes (Hospitalization)
  Sender: FDA-Public Use
  Company Number: None

PATIENT
  Age: 52 Year
  Sex: Male

DRUGS (4)
  1. HEPARIN [Suspect]
     Indication: CORONARY ARTERY BYPASS
     Dosage: IN OR
     Dates: start: 20080702
  2. HEPARIN [Suspect]
     Indication: MYOCARDIAL INFARCTION
     Dosage: IN OR
     Dates: start: 20080702
  3. HEPARIN [Suspect]
     Indication: CORONARY ARTERY BYPASS
     Dates: start: 20080624, end: 20080702
  4. HEPARIN [Suspect]
     Indication: MYOCARDIAL INFARCTION
     Dates: start: 20080624, end: 20080702

REACTIONS (3)
  - DISEASE RECURRENCE [None]
  - HEPARIN-INDUCED THROMBOCYTOPENIA [None]
  - INFARCTION [None]
